FAERS Safety Report 18918919 (Version 1)
Quarter: 2021Q1

REPORT INFORMATION
  Report Type: Spontaneous
  Country: US (occurrence: US)
  Receive Date: 20210220
  Receipt Date: 20210220
  Transmission Date: 20210420
  Serious: Yes (Life-Threatening, Hospitalization, Other)
  Sender: FDA-Public Use
  Company Number: US-ACCORD-217861

PATIENT
  Age: 69 Year
  Sex: Female

DRUGS (1)
  1. ATORVASTATIN/ATORVASTATIN CALCIUM [Suspect]
     Active Substance: ATORVASTATIN CALCIUM
     Indication: HYPERLIPIDAEMIA
     Dosage: RESUMED ON 18?MAR?2020, AND PERMANENTLY DISCONTINUED ON 10?AUG?2020
     Dates: start: 20200107

REACTIONS (1)
  - Thrombocytopenia [Recovered/Resolved]
